FAERS Safety Report 16137167 (Version 1)
Quarter: 2019Q1

REPORT INFORMATION
  Report Type: Report from Study
  Country: CA (occurrence: CA)
  Receive Date: 20190329
  Receipt Date: 20190329
  Transmission Date: 20190418
  Serious: Yes (Hospitalization, Other)
  Sender: FDA-Public Use
  Company Number: PHHY2012CA053649

PATIENT
  Sex: Female

DRUGS (10)
  1. SUPEUDOL [Concomitant]
     Active Substance: OXYCODONE HYDROCHLORIDE
     Indication: PRODUCT USED FOR UNKNOWN INDICATION
     Route: 065
  2. PANTOLOC [Concomitant]
     Active Substance: PANTOPRAZOLE SODIUM
     Indication: PRODUCT USED FOR UNKNOWN INDICATION
     Route: 065
  3. SANDOSTATIN LAR DEPOT [Suspect]
     Active Substance: OCTREOTIDE ACETATE
     Indication: ANGIODYSPLASIA
     Dosage: 10 MG, QMO (EVERY 4 WEEKS)
     Route: 030
     Dates: start: 20120131
  4. SANDOSTATIN [Suspect]
     Active Substance: OCTREOTIDE ACETATE
     Indication: ANGIODYSPLASIA
     Dosage: 50 UG, TID
     Route: 058
     Dates: start: 20120612, end: 20120617
  5. VENOFER [Concomitant]
     Active Substance: IRON SUCROSE
     Indication: PRODUCT USED FOR UNKNOWN INDICATION
     Route: 065
  6. SYNTHROID [Concomitant]
     Active Substance: LEVOTHYROXINE SODIUM
     Indication: PRODUCT USED FOR UNKNOWN INDICATION
     Route: 065
  7. FOLIC ACID. [Concomitant]
     Active Substance: FOLIC ACID
     Indication: PRODUCT USED FOR UNKNOWN INDICATION
     Route: 065
  8. OXAZEPAM. [Concomitant]
     Active Substance: OXAZEPAM
     Indication: PRODUCT USED FOR UNKNOWN INDICATION
     Route: 065
  9. VITAMIN B [Concomitant]
     Active Substance: VITAMIN B
     Indication: PRODUCT USED FOR UNKNOWN INDICATION
     Route: 048
  10. VITAMIN D [Concomitant]
     Active Substance: CHOLECALCIFEROL
     Indication: PRODUCT USED FOR UNKNOWN INDICATION
     Route: 048

REACTIONS (14)
  - Feeling abnormal [Recovering/Resolving]
  - Dizziness [Recovering/Resolving]
  - Cholecystitis [Recovering/Resolving]
  - Visual impairment [Recovering/Resolving]
  - Product use in unapproved indication [Unknown]
  - Oesophageal dilatation [Recovering/Resolving]
  - Haematochezia [Recovering/Resolving]
  - Pain [Recovering/Resolving]
  - Malaise [Recovering/Resolving]
  - Discomfort [Recovering/Resolving]
  - Abnormal sensation in eye [Recovering/Resolving]
  - Dyspnoea [Recovering/Resolving]
  - Muscle spasms [Recovering/Resolving]
  - Head discomfort [Recovering/Resolving]
